FAERS Safety Report 10163151 (Version 1)
Quarter: 2014Q2

REPORT INFORMATION
  Report Type: Spontaneous
  Country: DE (occurrence: DE)
  Receive Date: 20140509
  Receipt Date: 20140509
  Transmission Date: 20141212
  Serious: Yes (Life-Threatening, Other)
  Sender: FDA-Public Use
  Company Number: DE-ROXANE LABORATORIES, INC.-2014-RO-00737RO

PATIENT
  Age: 49 Year
  Sex: Male
  Weight: 74 kg

DRUGS (4)
  1. LORAZEPAM [Suspect]
     Indication: DEPRESSION
     Route: 048
  2. SERTRALINE [Suspect]
     Indication: DEPRESSION
     Route: 065
  3. LITHIUM CARBONATE [Suspect]
     Indication: DEPRESSION
     Route: 065
  4. PROTHIPENDYL [Suspect]
     Indication: PRODUCT USED FOR UNKNOWN INDICATION
     Route: 048

REACTIONS (2)
  - Suicide attempt [Unknown]
  - Treatment failure [Unknown]
